FAERS Safety Report 24790568 (Version 1)
Quarter: 2024Q4

REPORT INFORMATION
  Report Type: Spontaneous
  Country: BG (occurrence: BG)
  Receive Date: 20241230
  Receipt Date: 20241230
  Transmission Date: 20250115
  Serious: Yes (Hospitalization)
  Sender: PFIZER
  Company Number: None

PATIENT
  Age: 14 Year
  Sex: Female

DRUGS (1)
  1. GENOTROPIN [Suspect]
     Active Substance: SOMATROPIN
     Indication: Turner^s syndrome
     Dosage: 2 MG
     Route: 058
     Dates: start: 20150114, end: 20241008

REACTIONS (2)
  - Seizure [Unknown]
  - Haemangioma [Unknown]

NARRATIVE: CASE EVENT DATE: 20241009
